FAERS Safety Report 9494071 (Version 1)
Quarter: 2013Q3

REPORT INFORMATION
  Report Type: Spontaneous
  Country: US (occurrence: None)
  Receive Date: 20130829
  Receipt Date: 20130829
  Transmission Date: 20140515
  Serious: No
  Sender: FDA-Public Use
  Company Number: None

PATIENT
  Age: 45 Year
  Sex: Female

DRUGS (2)
  1. VELCADE [Suspect]
     Indication: PLASMA CELL MYELOMA
     Dates: start: 200701
  2. REVLIMID [Suspect]
     Indication: PLASMA CELL MYELOMA
     Dates: start: 200701, end: 2010

REACTIONS (3)
  - Gastrointestinal disorder [None]
  - Drug intolerance [None]
  - Drug ineffective [None]
